FAERS Safety Report 10865972 (Version 2)
Quarter: 2015Q1

REPORT INFORMATION
  Report Type: Spontaneous
  Country: US (occurrence: US)
  Receive Date: 20150224
  Receipt Date: 20150305
  Transmission Date: 20150721
  Serious: Yes (Hospitalization)
  Sender: FDA-Public Use
  Company Number: US-ACTELION-A-NJ2015-113151

PATIENT
  Age: 70 Year
  Sex: Female

DRUGS (8)
  1. DOXAZOSIN [Concomitant]
     Active Substance: DOXAZOSIN\DOXAZOSIN MESYLATE
  2. ADCIRCA [Concomitant]
     Active Substance: TADALAFIL
  3. LASIX [Concomitant]
     Active Substance: FUROSEMIDE
  4. OPSUMIT [Suspect]
     Active Substance: MACITENTAN
     Indication: PULMONARY ARTERIAL HYPERTENSION
     Dosage: 10 MG, QD
     Route: 048
     Dates: start: 20140818
  5. PANTOPRAZOLE [Concomitant]
     Active Substance: PANTOPRAZOLE SODIUM
  6. REMODULIN [Concomitant]
     Active Substance: TREPROSTINIL
  7. CALCITRIOL. [Concomitant]
     Active Substance: CALCITRIOL
  8. ZYLOPRIM [Concomitant]
     Active Substance: ALLOPURINOL

REACTIONS (2)
  - Renal failure [Not Recovered/Not Resolved]
  - Fluid retention [Not Recovered/Not Resolved]
